FAERS Safety Report 8819449 (Version 1)
Quarter: 2012Q4

REPORT INFORMATION
  Report Type: 
  Country: BR (occurrence: BR)
  Receive Date: 20121001
  Receipt Date: 20121001
  Transmission Date: 20130627
  Serious: Yes (Death)
  Sender: FDA-Public Use
  Company Number: BR-AMGEN-BRASP2012060497

PATIENT
  Age: 76 Year
  Sex: Male
  Weight: 90 kg

DRUGS (2)
  1. ENBREL [Suspect]
     Indication: RHEUMATOID ARTHRITIS
     Dosage: UNK
     Dates: start: 200502
  2. ENBREL [Suspect]
     Dosage: 50 mg, qwk
     Route: 058
     Dates: start: 201202

REACTIONS (1)
  - Cerebrovascular accident [Fatal]
